FAERS Safety Report 6133268-4 (Version None)
Quarter: 2009Q1

REPORT INFORMATION
  Report Type: 
  Country: None (occurrence: None)
  Receive Date: 20090326
  Receipt Date: 20090317
  Transmission Date: 20090719
  Serious: Yes (Hospitalization)
  Sender: FDA-Public Use
  Company Number: US-PFIZER INC-2008150314

PATIENT
  Sex: Male
  Weight: 91.156 kg

DRUGS (15)
  1. MARAVIROC [Suspect]
     Indication: HIV INFECTION
     Dosage: 150 MG, 2X/DAY
     Route: 048
     Dates: start: 20081113
  2. LAMIVUDINE [Concomitant]
     Dosage: 150 MG,
     Route: 048
     Dates: start: 20081113
  3. LOPINAVIR [Concomitant]
     Dosage: 200/50 MG, 2X/DAY,  TDD:  4 TABS
     Route: 048
     Dates: start: 20081113
  4. ZIDOVUDINE [Concomitant]
     Dosage: 200 MG, 2X/DAY
     Route: 048
     Dates: start: 20081113
  5. COUMADIN [Concomitant]
     Dosage: UNK
     Route: 048
     Dates: start: 20070401
  6. LISINOPRIL [Concomitant]
     Dosage: UNK
     Route: 048
     Dates: start: 20080303, end: 20081113
  7. DIFLUCAN [Concomitant]
     Dosage: UNK
     Route: 048
     Dates: start: 20080815, end: 20081202
  8. BACTRIM [Concomitant]
     Dosage: UNK
     Route: 048
     Dates: start: 20080303, end: 20081101
  9. METOPROLOL [Concomitant]
     Dosage: UNK
     Route: 048
     Dates: start: 20080918
  10. OMEPRAZOLE [Concomitant]
     Dosage: UNK
     Route: 048
     Dates: start: 20080722
  11. ALBUTEROL [Concomitant]
     Dosage: UNK
     Route: 055
     Dates: start: 20080314
  12. DOCUSATE SODIUM [Concomitant]
     Dosage: UNK
     Route: 048
     Dates: start: 20080827
  13. HYDROCORTISONE [Concomitant]
     Dosage: 2.5 %, UNK
     Route: 061
     Dates: start: 20080523
  14. MULTI-VITAMINS [Concomitant]
     Dosage: UNK
     Route: 048
     Dates: start: 20080509, end: 20081118
  15. TYLENOL [Concomitant]
     Dosage: UNK
     Route: 048
     Dates: start: 20080327, end: 20081101

REACTIONS (1)
  - RENAL FAILURE [None]
